FAERS Safety Report 7759858-0 (Version None)
Quarter: 2011Q3

REPORT INFORMATION
  Report Type: 
  Country: None (occurrence: None)
  Receive Date: 20110919
  Receipt Date: 20110907
  Transmission Date: 20111222
  Serious: Yes (Life-Threatening)
  Sender: FDA-Public Use
  Company Number: JP-JNJFOC-20110906427

PATIENT
  Age: 60 Year
  Sex: Male

DRUGS (1)
  1. LEVOFLOXACIN [Suspect]
     Indication: BRONCHOPNEUMONIA
     Dosage: SLOWLY FOR FIVE MINUTES
     Route: 041
     Dates: start: 20110826

REACTIONS (2)
  - ASTHMA [None]
  - ANAPHYLACTIC SHOCK [None]
